FAERS Safety Report 16571839 (Version 1)
Quarter: 2019Q3

REPORT INFORMATION
  Report Type: Spontaneous
  Country: US (occurrence: US)
  Receive Date: 20190715
  Receipt Date: 20190715
  Transmission Date: 20191004
  Serious: Yes (Hospitalization, Other)
  Sender: FDA-Public Use
  Company Number: US-SA-2019SA186785

PATIENT
  Age: 56 Year
  Sex: Female

DRUGS (12)
  1. AMLODIPINE [Concomitant]
     Active Substance: AMLODIPINE BESYLATE
     Dosage: 10 MG, QD
     Route: 048
  2. RIVAROXABAN [Suspect]
     Active Substance: RIVAROXABAN
     Indication: THROMBOSIS
     Dosage: 15 MG, BID
  3. RIVAROXABAN [Suspect]
     Active Substance: RIVAROXABAN
     Dosage: 20 MG, QD
  4. ALPRAZOLAM. [Concomitant]
     Active Substance: ALPRAZOLAM
     Dosage: 1 MG, TID AS NEEDED
  5. NIFEDIPINE. [Concomitant]
     Active Substance: NIFEDIPINE
     Dosage: 30 MG, QD SUSTAINED RELEASE
  6. PANTOPRAZOLE [Concomitant]
     Active Substance: PANTOPRAZOLE
     Dosage: 40 MG, QD
  7. LOSARTAN. [Concomitant]
     Active Substance: LOSARTAN
     Dosage: 25 MG, QD
     Route: 048
  8. ASPIRIN [ACETYLSALICYLIC ACID] [Concomitant]
     Active Substance: ASPIRIN
     Dosage: 81 MG, QD
     Route: 048
  9. ISOSORBIDE MONONITRATE. [Concomitant]
     Active Substance: ISOSORBIDE MONONITRATE
     Dosage: 60 MG, QD
     Route: 048
  10. CARVEDILOL. [Concomitant]
     Active Substance: CARVEDILOL
     Dosage: 25 MG, BID
     Route: 048
  11. ENOXAPARIN SODIUM. [Suspect]
     Active Substance: ENOXAPARIN SODIUM
     Dosage: 170 MG, BID
     Route: 058
  12. ENOXAPARIN SODIUM. [Suspect]
     Active Substance: ENOXAPARIN SODIUM
     Dosage: 140 MG, BID

REACTIONS (18)
  - Headache [Unknown]
  - Peripheral swelling [Unknown]
  - Pain [Unknown]
  - Respiratory failure [Recovering/Resolving]
  - Chest pain [Unknown]
  - Cough [Unknown]
  - Deep vein thrombosis [Unknown]
  - Thrombosis [Unknown]
  - Dyspnoea [Recovering/Resolving]
  - Nausea [Unknown]
  - Rales [Recovering/Resolving]
  - Wheezing [Recovering/Resolving]
  - Asthenia [Unknown]
  - Sinus tachycardia [Unknown]
  - Malaise [Unknown]
  - Chronic obstructive pulmonary disease [Recovering/Resolving]
  - Fatigue [Unknown]
  - Anti factor X activity increased [Unknown]
